FAERS Safety Report 23334782 (Version 1)
Quarter: 2023Q4

REPORT INFORMATION
  Report Type: Report from Study
  Country: CA (occurrence: CA)
  Receive Date: 20231224
  Receipt Date: 20231224
  Transmission Date: 20240110
  Serious: Yes (Death, Life-Threatening, Hospitalization, Other)
  Sender: FDA-Public Use
  Company Number: CA-Merck Healthcare KGaA-2023478906

PATIENT
  Sex: Female

DRUGS (2)
  1. REBIF [Suspect]
     Active Substance: INTERFERON BETA-1A
     Indication: Multiple sclerosis
     Route: 058
     Dates: start: 20020312
  2. REBIF [Suspect]
     Active Substance: INTERFERON BETA-1A

REACTIONS (7)
  - Death [Fatal]
  - Breast cancer stage IV [Unknown]
  - Metastases to bone [Unknown]
  - Breast cancer recurrent [Not Recovered/Not Resolved]
  - Metastases to pelvis [Unknown]
  - Metastases to spine [Unknown]
  - Metastases to neck [Unknown]
